FAERS Safety Report 5042170-0 (Version None)
Quarter: 2006Q2

REPORT INFORMATION
  Report Type: 
  Country: None (occurrence: None)
  Receive Date: 20060627
  Receipt Date: 20060609
  Transmission Date: 20061013
  Serious: Yes (Hospitalization)
  Sender: FDA-Public Use
  Company Number: 2006PL000019

PATIENT
  Age: 28 Year
  Sex: Female

DRUGS (2)
  1. IMURAN [Suspect]
     Indication: CROHN'S DISEASE
     Dosage: 100 MG QD PO; 150 MG QD PO
     Route: 048
  2. PREDNISONE [Concomitant]

REACTIONS (5)
  - ANAEMIA [None]
  - HEPATIC NEOPLASM MALIGNANT [None]
  - PROCTALGIA [None]
  - THROMBOCYTHAEMIA [None]
  - URINE LEUKOCYTE ESTERASE POSITIVE [None]
